FAERS Safety Report 18354091 (Version 3)
Quarter: 2020Q4

REPORT INFORMATION
  Report Type: Spontaneous
  Country: JP (occurrence: JP)
  Receive Date: 20201007
  Receipt Date: 20201026
  Transmission Date: 20210114
  Serious: Yes (Other)
  Sender: FDA-Public Use
  Company Number: NVSJ2020JP008188

PATIENT
  Age: 81 Year
  Sex: Male

DRUGS (1)
  1. BEOVU [Suspect]
     Active Substance: BROLUCIZUMAB-DBLL
     Indication: AGE-RELATED MACULAR DEGENERATION
     Dosage: 6 MG (BOTH EYES)
     Route: 031
     Dates: start: 20200803, end: 20200803

REACTIONS (8)
  - Vitreous opacities [Recovering/Resolving]
  - Retinal vein occlusion [Recovered/Resolved with Sequelae]
  - Vitreous floaters [Recovering/Resolving]
  - Blindness transient [Recovering/Resolving]
  - Retinal vasculitis [Recovered/Resolved with Sequelae]
  - Retinal artery occlusion [Recovered/Resolved with Sequelae]
  - Uveitis [Unknown]
  - Keratic precipitates [Recovering/Resolving]

NARRATIVE: CASE EVENT DATE: 20200818
